FAERS Safety Report 5046546-7 (Version None)
Quarter: 2006Q3

REPORT INFORMATION
  Report Type: 
  Country: None (occurrence: None)
  Receive Date: 20060705
  Receipt Date: 20060705
  Transmission Date: 20061208
  Serious: Yes (Other)
  Sender: FDA-Public Use
  Company Number: None

PATIENT
  Age: 61 Year
  Sex: Female
  Weight: 131.0895 kg

DRUGS (9)
  1. ACTOPLUS MET [Suspect]
     Indication: DIABETES MELLITUS
     Dosage: 15/500 TWICE DAILY ORALLY
     Route: 048
     Dates: start: 20060506, end: 20060508
  2. TOPROL-XL [Concomitant]
  3. LASIX [Concomitant]
  4. POTASSIUM CHLORIDE [Concomitant]
  5. COMBIVENT [Concomitant]
  6. ZYRTEC [Concomitant]
  7. GLUCOTROL XL [Concomitant]
  8. XOPENEX NEB [Concomitant]
  9. METFORMIN [Suspect]
     Dosage: 500 MG BID

REACTIONS (2)
  - MYALGIA [None]
  - MYOPATHY [None]
